FAERS Safety Report 4791695-1 (Version None)
Quarter: 2005Q4

REPORT INFORMATION
  Report Type: 
  Country: None (occurrence: None)
  Receive Date: 20051007
  Receipt Date: 20050606
  Transmission Date: 20060501
  Serious: Yes (Hospitalization, Congenital Anomaly)
  Sender: FDA-Public Use
  Company Number: FR-GLAXOSMITHKLINE-B0383781A

PATIENT
  Sex: Male
  Weight: 3.2 kg

DRUGS (3)
  1. LAMICTAL [Suspect]
     Indication: MYOCLONIC EPILEPSY
     Dosage: 300MG PER DAY
  2. SPECIAFOLDINE [Suspect]
     Indication: DRUG EXPOSURE DURING PREGNANCY
  3. KEPPRA [Concomitant]
     Indication: MYOCLONIC EPILEPSY
     Dosage: 1500MG PER DAY
     Dates: start: 20041006

REACTIONS (5)
  - DRUG EXPOSURE DURING PREGNANCY [None]
  - FEEDING DISORDER NEONATAL [None]
  - PREGNANCY [None]
  - PULMONARY ARTERIAL PRESSURE INCREASED [None]
  - VENTRICULAR SEPTAL DEFECT [None]
